FAERS Safety Report 20801059 (Version 1)
Quarter: 2022Q2

REPORT INFORMATION
  Report Type: Spontaneous
  Country: CN (occurrence: CN)
  Receive Date: 20220509
  Receipt Date: 20220509
  Transmission Date: 20220721
  Serious: Yes (Life-Threatening, Hospitalization, Other)
  Sender: FDA-Public Use
  Company Number: NZ-Adis-3660260-292923

PATIENT
  Age: 72 Year
  Sex: Female

DRUGS (7)
  1. ROSUVASTATIN [Interacting]
     Active Substance: ROSUVASTATIN
     Indication: Coronary artery disease
     Dosage: UNK
     Route: 065
     Dates: start: 2019
  2. ENTECAVIR [Interacting]
     Active Substance: ENTECAVIR
     Indication: Acute hepatitis B
     Dosage: 0.5 MG, QD
     Route: 065
     Dates: start: 2019
  3. BENAZEPRIL [Concomitant]
     Active Substance: BENAZEPRIL HYDROCHLORIDE
     Indication: Coronary artery disease
     Dosage: UNK
     Route: 065
     Dates: start: 2019
  4. CLOPIDOGREL [Concomitant]
     Active Substance: CLOPIDOGREL BISULFATE
     Indication: Coronary artery disease
     Dosage: UNK
     Route: 065
     Dates: start: 2019
  5. FELODIPINE [Concomitant]
     Active Substance: FELODIPINE
     Indication: Coronary artery disease
     Dosage: UNK
     Route: 065
     Dates: start: 2019
  6. ASPIRIN [Concomitant]
     Active Substance: ASPIRIN
     Indication: Coronary artery disease
     Dosage: UNK
     Route: 065
     Dates: start: 2019
  7. METOPROLOL [Concomitant]
     Active Substance: METOPROLOL
     Indication: Coronary artery disease
     Dosage: UNK
     Route: 065
     Dates: start: 2019

REACTIONS (2)
  - Rhabdomyolysis [Recovered/Resolved]
  - Drug interaction [Unknown]

NARRATIVE: CASE EVENT DATE: 20190101
